FAERS Safety Report 10637306 (Version 1)
Quarter: 2014Q4

REPORT INFORMATION
  Report Type: Spontaneous
  Country: US (occurrence: None)
  Receive Date: 20141204
  Receipt Date: 20141204
  Transmission Date: 20150529
  Serious: No
  Sender: FDA-Public Use
  Company Number: None

PATIENT
  Age: 80 Year
  Sex: Female
  Weight: 86.18 kg

DRUGS (1)
  1. AZELASTINE HYDROCHLORIDE. [Suspect]
     Active Substance: AZELASTINE HYDROCHLORIDE
     Indication: SINUS DISORDER
     Dosage: 2 SPRAY IN EACH NOSTRAL
     Route: 045
     Dates: start: 20141125, end: 20141125

REACTIONS (4)
  - Swelling face [None]
  - Epistaxis [None]
  - Facial pain [None]
  - Periorbital contusion [None]

NARRATIVE: CASE EVENT DATE: 20141125
